FAERS Safety Report 7324832-5 (Version None)
Quarter: 2011Q1

REPORT INFORMATION
  Report Type: 
  Country: None (occurrence: None)
  Receive Date: 20110301
  Receipt Date: 20110217
  Transmission Date: 20110831
  Serious: Yes (Hospitalization)
  Sender: FDA-Public Use
  Company Number: US-ELI_LILLY_AND_COMPANY-US201102005410

PATIENT
  Sex: Male

DRUGS (1)
  1. FORTEO [Suspect]
     Indication: OSTEOPOROSIS

REACTIONS (7)
  - BURNING SENSATION [None]
  - CONTUSION [None]
  - HYPOKINESIA [None]
  - HOSPITALISATION [None]
  - HYPOAESTHESIA [None]
  - ARTHRALGIA [None]
  - PERIPHERAL ARTERIAL OCCLUSIVE DISEASE [None]
